FAERS Safety Report 5520999-X (Version None)
Quarter: 2007Q4

REPORT INFORMATION
  Report Type: 
  Country: None (occurrence: None)
  Receive Date: 20071119
  Receipt Date: 20071107
  Transmission Date: 20080405
  Serious: Yes (Hospitalization)
  Sender: FDA-Public Use
  Company Number: FR-WYE-H01098507

PATIENT
  Sex: Female

DRUGS (9)
  1. CORDARONE [Suspect]
     Dosage: 200 MG TABLET (UNSPECIFIED FREQUENCY)
     Route: 048
     Dates: end: 20070202
  2. KARDEGIC [Concomitant]
     Route: 048
  3. XANAX [Concomitant]
     Route: 048
  4. XANAX [Concomitant]
     Dosage: UNKNOWN
     Route: 048
  5. LERCANIDIPINE HYDROCHLORIDE [Concomitant]
     Dosage: 1 DF OD
     Route: 048
     Dates: end: 20070202
  6. NOCTAMID [Concomitant]
     Dosage: UNKNOWN AS NEEDED
     Route: 048
  7. ACETAMINOPHEN [Concomitant]
     Dosage: UNKNOWN
     Route: 048
  8. SOTALOL HCL [Interacting]
     Route: 048
     Dates: end: 20070202
  9. HYZAAR [Concomitant]
     Dosage: 1 DF OD (50 MG/12.5 MG DAILY)
     Route: 048

REACTIONS (18)
  - AORTIC VALVE INCOMPETENCE [None]
  - ARRHYTHMIA [None]
  - ATRIAL FIBRILLATION [None]
  - ATRIOVENTRICULAR BLOCK SECOND DEGREE [None]
  - BLOOD PRESSURE SYSTOLIC INCREASED [None]
  - CARDIAC FAILURE [None]
  - DILATATION ATRIAL [None]
  - DRUG INTERACTION [None]
  - ESCHAR [None]
  - ILL-DEFINED DISORDER [None]
  - INFECTION [None]
  - INFLAMMATION [None]
  - LEUKOCYTOSIS [None]
  - MITRAL VALVE INCOMPETENCE [None]
  - PNEUMONITIS [None]
  - PSEUDOMEMBRANOUS COLITIS [None]
  - PULMONARY HYPERTENSION [None]
  - RENAL FAILURE ACUTE [None]
